FAERS Safety Report 16493726 (Version 3)
Quarter: 2021Q4

REPORT INFORMATION
  Report Type: Report from Study
  Country: US (occurrence: US)
  Receive Date: 20190628
  Receipt Date: 20211027
  Transmission Date: 20220303
  Serious: Yes (Other)
  Sender: FDA-Public Use
  Company Number: US-JAZZ-2019-US-007172

PATIENT
  Age: 28 Year
  Sex: Female

DRUGS (15)
  1. XYREM [Suspect]
     Active Substance: SODIUM OXYBATE
     Indication: Narcolepsy
     Dosage: 2.25 G, BID
     Route: 048
     Dates: start: 201502, end: 201502
  2. XYREM [Suspect]
     Active Substance: SODIUM OXYBATE
     Indication: Cataplexy
     Dosage: DOSE ADJUSTMENT
     Route: 048
     Dates: start: 201502, end: 201503
  3. XYREM [Suspect]
     Active Substance: SODIUM OXYBATE
     Dosage: 4.5 G, BID
     Route: 048
     Dates: start: 201503, end: 2019
  4. NAPROXEN [Concomitant]
     Active Substance: NAPROXEN
  5. ZOLOFT [Concomitant]
     Active Substance: SERTRALINE HYDROCHLORIDE
  6. PROZAC [Concomitant]
     Active Substance: FLUOXETINE HYDROCHLORIDE
  7. YASMIN [Concomitant]
     Active Substance: DROSPIRENONE\ETHINYL ESTRADIOL
  8. ATOVAQUONE\PROGUANIL [Concomitant]
     Active Substance: ATOVAQUONE\PROGUANIL
  9. FLONASE ALLERGY RELIEF [Concomitant]
     Active Substance: FLUTICASONE PROPIONATE
  10. STRATTERA [Concomitant]
     Active Substance: ATOMOXETINE HYDROCHLORIDE
  11. VIIBRYD [Concomitant]
     Active Substance: VILAZODONE HYDROCHLORIDE
  12. ALEVE [Concomitant]
     Active Substance: NAPROXEN SODIUM
  13. ONE DAILY WOMEN^S [Concomitant]
  14. AMETHYST [Concomitant]
     Active Substance: ETHINYL ESTRADIOL\LEVONORGESTREL
  15. ZOLPIDEM TARTRATE [Concomitant]
     Active Substance: ZOLPIDEM TARTRATE

REACTIONS (2)
  - Ovarian cyst [Not Recovered/Not Resolved]
  - Endometriosis [Unknown]

NARRATIVE: CASE EVENT DATE: 20190715
